FAERS Safety Report 6016472-5 (Version None)
Quarter: 2008Q4

REPORT INFORMATION
  Report Type: 
  Country: None (occurrence: None)
  Receive Date: 20081222
  Receipt Date: 20081212
  Transmission Date: 20090506
  Serious: Yes (Hospitalization)
  Sender: FDA-Public Use
  Company Number: US-SANOFI-SYNTHELABO-F01200801889

PATIENT
  Sex: Male

DRUGS (4)
  1. FLUOROURACIL [Suspect]
     Dosage: 400 MG IV BOLUS THEN 2.4 G/M2, Q2W, IV DRIP DAYS 1 + 2
     Route: 042
  2. LEUCOVORIN CALCIUM [Suspect]
     Route: 042
  3. BEVACIZUMAB [Suspect]
     Route: 042
     Dates: start: 20080618, end: 20080618
  4. OXALIPLATIN [Suspect]
     Indication: RECTAL CANCER
     Route: 042
     Dates: start: 20080618, end: 20080618

REACTIONS (1)
  - POSTOPERATIVE WOUND INFECTION [None]
